FAERS Safety Report 7170256-3 (Version None)
Quarter: 2010Q4

REPORT INFORMATION
  Report Type: 
  Country: None (occurrence: None)
  Receive Date: 20101217
  Receipt Date: 20101206
  Transmission Date: 20110411
  Serious: No
  Sender: FDA-Public Use
  Company Number: US-PFIZER INC-2010166943

PATIENT
  Age: 28 Year
  Sex: Female
  Weight: 61.224 kg

DRUGS (2)
  1. DEPO-PROVERA [Suspect]
     Dosage: 1 INJECTION Q3 MONTHS (1ST INJECTION)
     Route: 030
     Dates: start: 20101125
  2. LEVONORGESTREL [Suspect]
     Indication: ORAL CONTRACEPTION
     Dosage: .75 MG, UNK, 1ST TAB WITHIN 72H OF UNPROTECTED SEX, 2ND TAB 12H LATER
     Dates: start: 20101110

REACTIONS (3)
  - ABDOMINAL PAIN UPPER [None]
  - BACK PAIN [None]
  - HEADACHE [None]
